FAERS Safety Report 11791710 (Version 2)
Quarter: 2015Q4

REPORT INFORMATION
  Report Type: Spontaneous
  Country: CN (occurrence: CN)
  Receive Date: 20151201
  Receipt Date: 20151221
  Transmission Date: 20160305
  Serious: Yes (Other)
  Sender: FDA-Public Use
  Company Number: CN-BAXTER-2015BAX063702

PATIENT
  Age: 22 Month
  Sex: Male
  Weight: 14 kg

DRUGS (3)
  1. QIFUMEI [Suspect]
     Active Substance: SEVOFLURANE
     Dosage: AT 1 MINIMUM ALVEOLAR CONCENTRATION
     Route: 055
     Dates: start: 20131127, end: 20131127
  2. QIFUMEI [Suspect]
     Active Substance: SEVOFLURANE
     Indication: INDUCTION OF ANAESTHESIA
     Dosage: IN 6 L/MIN OXYGEN
     Route: 055
     Dates: start: 20131127, end: 20131127
  3. REMIFENTANIL [Suspect]
     Active Substance: REMIFENTANIL
     Indication: GENERAL ANAESTHESIA
     Dosage: 0.05 TO 0.1 MICROGRAM X KG
     Route: 042
     Dates: start: 20131127, end: 20131127

REACTIONS (2)
  - Cardiac arrest [Recovered/Resolved]
  - Obstructive airways disorder [Recovered/Resolved]

NARRATIVE: CASE EVENT DATE: 20131127
